FAERS Safety Report 17293733 (Version 2)
Quarter: 2020Q1

REPORT INFORMATION
  Report Type: Spontaneous
  Country: JP (occurrence: JP)
  Receive Date: 20200121
  Receipt Date: 20200122
  Transmission Date: 20200409
  Serious: No
  Sender: FDA-Public Use
  Company Number: JP-PFIZER INC-2019537641

PATIENT
  Age: 70 Year
  Sex: Male

DRUGS (1)
  1. BESPONSA [Suspect]
     Active Substance: INOTUZUMAB OZOGAMICIN
     Indication: ACUTE LYMPHOCYTIC LEUKAEMIA RECURRENT
     Dosage: UNK
     Route: 042

REACTIONS (3)
  - White blood cell count decreased [Recovered/Resolved]
  - Neoplasm progression [Unknown]
  - Neutrophil count decreased [Unknown]
